FAERS Safety Report 6924292-X (Version None)
Quarter: 2010Q3

REPORT INFORMATION
  Report Type: 
  Country: None (occurrence: None)
  Receive Date: 20100811
  Receipt Date: 20100811
  Transmission Date: 20110219
  Serious: Yes (Other)
  Sender: FDA-Public Use
  Company Number: None

PATIENT
  Age: 75 Year
  Sex: Female

DRUGS (1)
  1. SPIRIVA [Suspect]
     Indication: CHRONIC OBSTRUCTIVE PULMONARY DISEASE
     Dosage: INHALE CONTENTS OR CAPSYLE ONCE DAILY
     Dates: start: 20091001, end: 20100801

REACTIONS (3)
  - CAPSULE ISSUE [None]
  - DEVICE ISSUE [None]
  - PRODUCT QUALITY ISSUE [None]
